FAERS Safety Report 11677620 (Version 3)
Quarter: 2015Q4

REPORT INFORMATION
  Report Type: Spontaneous
  Country: US (occurrence: US)
  Receive Date: 20151027
  Receipt Date: 20151110
  Transmission Date: 20160304
  Serious: No
  Sender: FDA-Public Use
  Company Number: US-ELI_LILLY_AND_COMPANY-US201010003225

PATIENT
  Age: 59 Year
  Sex: Female

DRUGS (5)
  1. FORTEO [Suspect]
     Active Substance: TERIPARATIDE
     Dosage: 20 UG, QD
  2. FORTEO [Suspect]
     Active Substance: TERIPARATIDE
     Dosage: 20 UG, QD
  3. FORTEO [Suspect]
     Active Substance: TERIPARATIDE
     Dosage: 20 UG, QD
  4. FORTEO [Suspect]
     Active Substance: TERIPARATIDE
     Indication: OSTEOPOROSIS
     Dosage: 20 UG, QD
     Dates: start: 2010
  5. FORTEO [Suspect]
     Active Substance: TERIPARATIDE
     Dosage: 20 UG, QD

REACTIONS (15)
  - Visual acuity reduced [Not Recovered/Not Resolved]
  - Injection site rash [Unknown]
  - Smear cervix abnormal [Unknown]
  - Blood test abnormal [Unknown]
  - Laboratory test abnormal [Not Recovered/Not Resolved]
  - Ovarian cyst [Unknown]
  - Tooth loss [Not Recovered/Not Resolved]
  - Bone density decreased [Unknown]
  - Kidney infection [Unknown]
  - Rotator cuff syndrome [Recovering/Resolving]
  - Pain [Recovering/Resolving]
  - Urine analysis abnormal [Unknown]
  - Fear [Unknown]
  - Injection site bruising [Unknown]
  - White blood cell analysis abnormal [Unknown]

NARRATIVE: CASE EVENT DATE: 201010
